FAERS Safety Report 7032943-7 (Version None)
Quarter: 2010Q4

REPORT INFORMATION
  Report Type: 
  Country: None (occurrence: None)
  Receive Date: 20101007
  Receipt Date: 20100916
  Transmission Date: 20110411
  Serious: Yes (Hospitalization, Other)
  Sender: FDA-Public Use
  Company Number: US-BAYER-200943701NA

PATIENT
  Age: 21 Year
  Sex: Female
  Weight: 50 kg

DRUGS (3)
  1. YASMIN [Suspect]
     Indication: CONTRACEPTION
     Dosage: APR-2007
     Route: 048
     Dates: start: 20030201, end: 20080401
  2. YAZ [Suspect]
     Indication: CONTRACEPTION
     Dosage: STOP DATE: APR-2007/2008
     Route: 048
     Dates: start: 20030101
  3. MEDROXYPR AC [Concomitant]
     Route: 065
     Dates: start: 20080926, end: 20091201

REACTIONS (10)
  - ABDOMINAL DISTENSION [None]
  - ABDOMINAL PAIN [None]
  - ABDOMINAL PAIN UPPER [None]
  - BILIARY DYSKINESIA [None]
  - CHOLECYSTITIS [None]
  - CONSTIPATION [None]
  - DYSPEPSIA [None]
  - GASTRITIS [None]
  - HIATUS HERNIA [None]
  - NAUSEA [None]
